FAERS Safety Report 10720906 (Version 3)
Quarter: 2015Q2

REPORT INFORMATION
  Report Type: Spontaneous
  Country: US (occurrence: US)
  Receive Date: 20150119
  Receipt Date: 20150625
  Transmission Date: 20150821
  Serious: No
  Sender: FDA-Public Use
  Company Number: US-PFIZER INC-2015021720

PATIENT
  Age: 58 Year
  Sex: Female

DRUGS (12)
  1. HYDROCHLOROTHIAZIDE. [Concomitant]
     Active Substance: HYDROCHLOROTHIAZIDE
     Dosage: UNK
     Dates: start: 2000
  2. CHANTIX [Suspect]
     Active Substance: VARENICLINE TARTRATE
     Dosage: 5 MG, 2X/DAY (2 PILLS AM AND PM)
     Dates: start: 20150114, end: 20150116
  3. QUINAPRIL [Concomitant]
     Active Substance: QUINAPRIL\QUINAPRIL HYDROCHLORIDE
     Dosage: UNK
     Dates: start: 2002
  4. POTASSIUM [Concomitant]
     Active Substance: POTASSIUM
     Dosage: UNK
     Dates: start: 2007
  5. METFORMIN [Concomitant]
     Active Substance: METFORMIN HYDROCHLORIDE
     Dosage: UNK
     Dates: start: 201401
  6. CHANTIX [Suspect]
     Active Substance: VARENICLINE TARTRATE
     Dosage: 5 MG, 1X/DAY (1 PILL AM)
     Dates: start: 20150113, end: 20150114
  7. CRESTOR [Concomitant]
     Active Substance: ROSUVASTATIN CALCIUM
     Dosage: UNK
     Dates: start: 2007
  8. CHANTIX [Suspect]
     Active Substance: VARENICLINE TARTRATE
     Dosage: 10 MG, 2X/DAY (2 PILLS AM AND PM)
     Dates: start: 20150116, end: 20150330
  9. ATENOLOL. [Concomitant]
     Active Substance: ATENOLOL
     Dosage: UNK
     Dates: start: 2000
  10. CHANTIX [Suspect]
     Active Substance: VARENICLINE TARTRATE
     Indication: SMOKING CESSATION THERAPY
     Dosage: 0.5 MG, 2X/DAY
     Dates: start: 20150106
  11. FENOFIBRATE. [Concomitant]
     Active Substance: FENOFIBRATE
     Dosage: UNK
     Dates: start: 2012
  12. METHIMAZOLE. [Concomitant]
     Active Substance: METHIMAZOLE
     Dosage: UNK
     Dates: start: 2012

REACTIONS (4)
  - Insomnia [Recovered/Resolved]
  - Skin discolouration [Recovered/Resolved]
  - Rash [Recovered/Resolved]
  - Blood pressure increased [Recovered/Resolved]

NARRATIVE: CASE EVENT DATE: 20150115
